FAERS Safety Report 6841736-2 (Version None)
Quarter: 2010Q3

REPORT INFORMATION
  Report Type: 
  Country: None (occurrence: None)
  Receive Date: 20100714
  Receipt Date: 20070712
  Transmission Date: 20110219
  Serious: No
  Sender: FDA-Public Use
  Company Number: US-PFIZER INC-2007059287

PATIENT
  Sex: Female
  Weight: 71.8 kg

DRUGS (7)
  1. CHANTIX [Suspect]
     Indication: SMOKING CESSATION THERAPY
     Dates: start: 20070620
  2. GLEEVEC [Concomitant]
  3. ZOLOFT [Concomitant]
  4. CLOZAPINE [Concomitant]
  5. PRAVACHOL [Concomitant]
     Indication: BLOOD CHOLESTEROL
  6. NEXIUM [Concomitant]
  7. ALL OTHER THERAPEUTIC PRODUCTS [Concomitant]
     Indication: OLIGURIA

REACTIONS (7)
  - ANXIETY [None]
  - DEPRESSED MOOD [None]
  - DEPRESSION [None]
  - DIARRHOEA [None]
  - IRRITABILITY [None]
  - MALAISE [None]
  - VOMITING [None]
